FAERS Safety Report 5623966-0 (Version None)
Quarter: 2008Q1

REPORT INFORMATION
  Report Type: 
  Country: None (occurrence: None)
  Receive Date: 20080130
  Receipt Date: 20080114
  Transmission Date: 20080703
  Serious: Yes (Other)
  Sender: FDA-Public Use
  Company Number: AEUSA200700289

PATIENT
  Age: 21 Year
  Sex: Male
  Weight: 127.0072 kg

DRUGS (1)
  1. GAMUNEX [Suspect]
     Indication: IMMUNODEFICIENCY COMMON VARIABLE
     Dosage: 365 MG/KG; QM; IV
     Route: 042
     Dates: start: 20070101

REACTIONS (1)
  - ANTI-HBS ANTIBODY POSITIVE [None]
